FAERS Safety Report 5847894-0 (Version None)
Quarter: 2008Q3

REPORT INFORMATION
  Report Type: 
  Country: None (occurrence: None)
  Receive Date: 20080814
  Receipt Date: 20080812
  Transmission Date: 20090109
  Serious: Yes (Life-Threatening, Hospitalization, Other)
  Sender: FDA-Public Use
  Company Number: 2008SP016374

PATIENT
  Age: 79 Year
  Sex: Male
  Weight: 60 kg

DRUGS (5)
  1. VIRAFERONPEG [Suspect]
     Indication: HEPATITIS C
     Dosage: 0.5 MCG/KG; QW;
     Dates: start: 20080116, end: 20080808
  2. BLINDED PEGINTERFERON ALFA-2B (S-P) [Suspect]
     Indication: HEPATITIS C
     Dosage: 800 MG; QD;
     Dates: start: 20080116, end: 20080808
  3. STAGID [Concomitant]
  4. DIAMICRON [Concomitant]
  5. GLUCOR 50 [Concomitant]

REACTIONS (1)
  - HAEMORRHAGIC STROKE [None]
